FAERS Safety Report 5630639-7 (Version None)
Quarter: 2008Q1

REPORT INFORMATION
  Report Type: 
  Country: None (occurrence: None)
  Receive Date: 20080213
  Receipt Date: 20080204
  Transmission Date: 20080703
  Serious: Yes (Death)
  Sender: FDA-Public Use
  Company Number: 2008-01020

PATIENT
  Age: 28 Year
  Sex: Female

DRUGS (8)
  1. CLONIDINE [Suspect]
  2. GABAPENTIN [Suspect]
  3. DILTIA XT (WATSON LABORATORIES)(DILTIAZEM HYDROCHLORIDE) CAPSULE (EXTE [Suspect]
  4. BUPROPION HYDROCHLORIDE [Suspect]
  5. QUETIAPINE FUMARATE [Suspect]
  6. ZIPRASIDONE HCL [Suspect]
  7. TIZANIDINE HCL [Suspect]
  8. DULOXETINE() [Suspect]

REACTIONS (1)
  - DEATH [None]
